FAERS Safety Report 15209028 (Version 2)
Quarter: 2020Q2

REPORT INFORMATION
  Report Type: Spontaneous
  Country: US (occurrence: US)
  Receive Date: 20180727
  Receipt Date: 20200407
  Transmission Date: 20200713
  Serious: Yes (Death, Hospitalization, Other)
  Sender: FDA-Public Use
  Company Number: US-009507513-1807USA012085

PATIENT
  Sex: Male
  Weight: 137.42 kg

DRUGS (3)
  1. VICTOZA [Suspect]
     Active Substance: LIRAGLUTIDE
     Indication: TYPE 2 DIABETES MELLITUS
     Dosage: 1.8 MILLIGRAM, DAILY; 18 MG/3 ML PEN
     Route: 058
     Dates: start: 20160211, end: 201610
  2. BYETTA [Suspect]
     Active Substance: EXENATIDE
     Indication: TYPE 2 DIABETES MELLITUS
     Dosage: 5 MILLIGRAM, BID
     Route: 065
     Dates: start: 20090714
  3. JANUVIA [Suspect]
     Active Substance: SITAGLIPTIN PHOSPHATE
     Indication: TYPE 2 DIABETES MELLITUS
     Dosage: UNK
     Route: 048
     Dates: start: 20100310, end: 2010

REACTIONS (9)
  - Diabetic neuropathy [Unknown]
  - Pancreatic carcinoma metastatic [Fatal]
  - Diabetes mellitus inadequate control [Unknown]
  - Chronic kidney disease [Unknown]
  - Bronchitis [Unknown]
  - Diabetic vascular disorder [Unknown]
  - Erectile dysfunction [Unknown]
  - Diabetic nephropathy [Unknown]
  - Diabetic foot [Unknown]

NARRATIVE: CASE EVENT DATE: 20111216
